FAERS Safety Report 12650687 (Version 1)
Quarter: 2016Q3

REPORT INFORMATION
  Report Type: Spontaneous
  Country: PE (occurrence: PE)
  Receive Date: 20160815
  Receipt Date: 20160815
  Transmission Date: 20161109
  Serious: Yes (Other)
  Sender: FDA-Public Use
  Company Number: PE-AMGEN-PERSP2016105142

PATIENT

DRUGS (4)
  1. PROLIA [Suspect]
     Active Substance: DENOSUMAB
     Dosage: 60 MG, CYCLICAL
     Route: 058
     Dates: start: 20160213
  2. PROLIA [Suspect]
     Active Substance: DENOSUMAB
     Dosage: 60 MG, CYCLICAL
     Route: 058
     Dates: start: 20150108
  3. PROLIA [Suspect]
     Active Substance: DENOSUMAB
     Indication: OSTEOPOROSIS
     Dosage: 60 MG, CYCLICAL
     Route: 058
     Dates: start: 20131226
  4. PROLIA [Suspect]
     Active Substance: DENOSUMAB
     Dosage: 60 MG, CYCLICAL
     Route: 058
     Dates: start: 20140626

REACTIONS (8)
  - Nasopharyngitis [Recovering/Resolving]
  - Intraocular pressure increased [Unknown]
  - Eye pain [Recovered/Resolved]
  - Lens disorder [Recovered/Resolved]
  - Angle closure glaucoma [Unknown]
  - Cataract [Recovered/Resolved]
  - Oropharyngeal pain [Recovering/Resolving]
  - Back pain [Recovering/Resolving]

NARRATIVE: CASE EVENT DATE: 201602
